FAERS Safety Report 9049130 (Version 2)
Quarter: 2013Q2

REPORT INFORMATION
  Report Type: Spontaneous
  Country: US (occurrence: None)
  Receive Date: 20120525
  Receipt Date: 20120827
  Transmission Date: 20140414
  Serious: Yes (Other)
  Sender: FDA-Public Use
  Company Number: 345564

PATIENT
  Age: 50 Year
  Sex: Male
  Weight: 90.7 kg

DRUGS (9)
  1. VICTOZA (LIRAGLUTIDE) SOLUTION FOR INJECTION, 6 MG/ML [Suspect]
     Indication: TYPE 2 DIABETES MELLITUS
     Route: 058
     Dates: start: 201110, end: 201201
  2. METFORMIN (METFORMIN) [Concomitant]
  3. CRESTOR (ROSUVASTATIN CALCIUM) [Concomitant]
  4. HYDROCHLOROTHIAZIDE (HYDROCHLOROTHIAZIDE) [Concomitant]
  5. LEVOXYL (LEVOTHYROXINE SODIUM) [Concomitant]
  6. LISINOPRIL (LISINOPRIL) [Concomitant]
  7. ENALAPRIL (00574902) (ENALAPRIL MALEATE) [Concomitant]
  8. ASPIRIN (ACETYLSALICYLIC ACID) [Concomitant]
  9. AMARYL (GLIMEPIRIDE) [Concomitant]

REACTIONS (1)
  - Pancreatitis [None]
